FAERS Safety Report 19167653 (Version 1)
Quarter: 2021Q2

REPORT INFORMATION
  Report Type: Spontaneous
  Country: US (occurrence: US)
  Receive Date: 20210422
  Receipt Date: 20210422
  Transmission Date: 20210717
  Serious: No
  Sender: FDA-Public Use
  Company Number: US-FRESENIUS KABI-FK202103950

PATIENT

DRUGS (1)
  1. HEPARIN SODIUM IN 0.45% SODIUM CHLORIDE [Suspect]
     Active Substance: HEPARIN SODIUM\SODIUM CHLORIDE
     Indication: EMBOLISM VENOUS
     Dosage: INFUSION TITRATED FOR 2 DAYS; FINAL RATE OF 22 UNITS/KG/HR
     Route: 065

REACTIONS (1)
  - Therapeutic product effect decreased [Unknown]
